FAERS Safety Report 4803641-2 (Version None)
Quarter: 2005Q4

REPORT INFORMATION
  Report Type: 
  Country: None (occurrence: None)
  Receive Date: 20051014
  Receipt Date: 20051004
  Transmission Date: 20060501
  Serious: Yes (Life-Threatening)
  Sender: FDA-Public Use
  Company Number: 200510381BYL

PATIENT
  Age: 63 Year
  Sex: Male
  Weight: 56 kg

DRUGS (14)
  1. ADALAT [Suspect]
     Indication: HYPERTENSION
     Dosage: 40 MG, BID, ORAL
     Route: 048
     Dates: start: 20050625, end: 20050713
  2. DIOVAN [Suspect]
     Indication: HYPERTENSION
     Dosage: 40 MG, QD, ORAL
     Route: 048
     Dates: start: 20050705, end: 20050713
  3. OMEPRAZOLE [Suspect]
     Indication: ULCER
     Dosage: SEE IMAGE
     Route: 048
     Dates: start: 20050628, end: 20050704
  4. OMEPRAZOLE [Suspect]
     Indication: ULCER
     Dosage: SEE IMAGE
     Route: 048
     Dates: start: 20050705, end: 20050713
  5. CEFOTIAM HYDROCHLORIDE [Suspect]
     Dosage: SEE IMAGE
     Route: 048
     Dates: start: 20050623, end: 20050627
  6. CEFOTIAM HYDROCHLORIDE [Suspect]
     Dosage: SEE IMAGE
     Route: 048
     Dates: start: 20050628, end: 20050630
  7. CONIEL [Concomitant]
  8. ALLOPURINOL [Concomitant]
  9. ZANTAC [Concomitant]
  10. KREMEZIN [Concomitant]
  11. LASIX [Concomitant]
  12. CRAVIT [Concomitant]
  13. ALLOID [Concomitant]
  14. EPOGIN [Concomitant]

REACTIONS (5)
  - GRANULOCYTOPENIA [None]
  - INTERSTITIAL LUNG DISEASE [None]
  - OESOPHAGEAL ULCER [None]
  - PNEUMONIA BACTERIAL [None]
  - WHITE BLOOD CELL COUNT DECREASED [None]
